FAERS Safety Report 16372371 (Version 1)
Quarter: 2019Q2

REPORT INFORMATION
  Report Type: Spontaneous
  Country: US (occurrence: US)
  Receive Date: 20190424
  Receipt Date: 20190424
  Transmission Date: 20190711
  Serious: Yes (Hospitalization)
  Sender: FDA-Public Use
  Company Number: None

PATIENT
  Age: 70 Year
  Sex: Male

DRUGS (16)
  1. PREDNISONE. [Concomitant]
     Active Substance: PREDNISONE
  2. TRAZODONE [Concomitant]
     Active Substance: TRAZODONE HYDROCHLORIDE
  3. BUPROPION. [Concomitant]
     Active Substance: BUPROPION
  4. DOCUSATE SODIUM. [Concomitant]
     Active Substance: DOCUSATE SODIUM
  5. LASIX [Concomitant]
     Active Substance: FUROSEMIDE
  6. PANTOPRAZOLO [Concomitant]
     Active Substance: PANTOPRAZOLE SODIUM
  7. PERIDEX [Concomitant]
     Active Substance: CHLORHEXIDINE GLUCONATE
  8. GLIPIZINE [Concomitant]
  9. ASPIRIN. [Concomitant]
     Active Substance: ASPIRIN
  10. WARFORIN [Concomitant]
  11. SILDENAFIL. [Concomitant]
     Active Substance: SILDENAFIL
  12. LETAIRIS [Suspect]
     Active Substance: AMBRISENTAN
     Indication: PULMONARY ARTERIAL HYPERTENSION
     Route: 048
     Dates: start: 201110
  13. PRAVASTATIN. [Concomitant]
     Active Substance: PRAVASTATIN
  14. DIPHONHYDRAMINE [Concomitant]
  15. ALLOPURINOL. [Concomitant]
     Active Substance: ALLOPURINOL
  16. LORATADIN [Concomitant]
     Active Substance: LORATADINE

REACTIONS (2)
  - Aortic valve replacement [None]
  - Dyspnoea [None]

NARRATIVE: CASE EVENT DATE: 20190408
